FAERS Safety Report 26189890 (Version 1)
Quarter: 2025Q4

REPORT INFORMATION
  Report Type: Spontaneous
  Country: CA (occurrence: CA)
  Receive Date: 20251223
  Receipt Date: 20251223
  Transmission Date: 20260117
  Serious: Yes (Hospitalization, Other)
  Sender: AUROBINDO
  Company Number: CA-AUROBINDO-AUR-APL-2025-065704

PATIENT
  Age: 50 Year
  Sex: Male
  Weight: 127 kg

DRUGS (1)
  1. VANCOMYCIN HYDROCHLORIDE [Suspect]
     Active Substance: VANCOMYCIN HYDROCHLORIDE
     Indication: Scrotal abscess
     Dosage: 2 GRAM, TWO TIMES A DAY

REACTIONS (4)
  - Acute kidney injury [Recovered/Resolved]
  - Scrotal abscess [Recovered/Resolved]
  - Blood creatinine increased [Recovered/Resolved]
  - Intensive care [Recovered/Resolved]
